FAERS Safety Report 5586034-2 (Version None)
Quarter: 2008Q1

REPORT INFORMATION
  Report Type: 
  Country: None (occurrence: None)
  Receive Date: 20080104
  Receipt Date: 20071221
  Transmission Date: 20080703
  Serious: Yes (Hospitalization, Disabling)
  Sender: FDA-Public Use
  Company Number: 2007P1000734

PATIENT
  Age: 40 Year
  Sex: Female

DRUGS (3)
  1. BUSULFAN (BUSULFAN) [Suspect]
     Indication: STEM CELL TRANSPLANT
     Dosage: 31.2 ML; X1; IV
     Route: 042
     Dates: start: 20070713, end: 20070714
  2. FLUDARABINE PHOSPHATE [Concomitant]
  3. PHENYTOIN [Concomitant]

REACTIONS (9)
  - ACINETOBACTER INFECTION [None]
  - ACUTE GRAFT VERSUS HOST DISEASE [None]
  - BACTERIAL SEPSIS [None]
  - CYSTITIS HAEMORRHAGIC [None]
  - CYTOMEGALOVIRUS VIRAEMIA [None]
  - LIVER DISORDER [None]
  - PSEUDOMEMBRANOUS COLITIS [None]
  - STAPHYLOCOCCAL SEPSIS [None]
  - STOMATITIS [None]
